FAERS Safety Report 23411059 (Version 1)
Quarter: 2024Q1

REPORT INFORMATION
  Report Type: Spontaneous
  Country: US (occurrence: US)
  Receive Date: 20240117
  Receipt Date: 20240117
  Transmission Date: 20240410
  Serious: No
  Sender: FDA-Public Use
  Company Number: US-SK LIFE SCIENCE, INC-SKPVG-2023-000320

PATIENT

DRUGS (3)
  1. XCOPRI [Suspect]
     Active Substance: CENOBAMATE
     Indication: Epilepsy
     Dosage: 12.5MG ONCE DAILY BEFORE BEDTIME
     Route: 048
     Dates: start: 20230314
  2. KEPPRA [Concomitant]
     Active Substance: LEVETIRACETAM
     Indication: Product used for unknown indication
     Dosage: UNK
     Route: 065
  3. LACOSAMIDE [Concomitant]
     Active Substance: LACOSAMIDE
     Indication: Product used for unknown indication
     Dosage: UNK
     Route: 065

REACTIONS (21)
  - Muscular weakness [Unknown]
  - Limb discomfort [Unknown]
  - Clumsiness [Unknown]
  - Seizure [Unknown]
  - Fear [Unknown]
  - Deja vu [Unknown]
  - Myalgia [Unknown]
  - Panic reaction [Unknown]
  - Nervousness [Unknown]
  - Anxiety [Unknown]
  - Feeling abnormal [Not Recovered/Not Resolved]
  - Dizziness [Unknown]
  - Gait disturbance [Unknown]
  - Balance disorder [Unknown]
  - Confusional state [Unknown]
  - Back pain [Unknown]
  - Tremor [Unknown]
  - Palpitations [Unknown]
  - Dyspnoea [Unknown]
  - Headache [Not Recovered/Not Resolved]
  - Somnolence [Not Recovered/Not Resolved]

NARRATIVE: CASE EVENT DATE: 20230301
